FAERS Safety Report 17140560 (Version 1)
Quarter: 2019Q4

REPORT INFORMATION
  Report Type: Spontaneous
  Country: US (occurrence: US)
  Receive Date: 20191211
  Receipt Date: 20191211
  Transmission Date: 20200122
  Serious: No
  Sender: FDA-Public Use
  Company Number: US-UCBSA-2016005750

PATIENT
  Age: 22 Month
  Sex: Female

DRUGS (1)
  1. VIMPAT [Suspect]
     Active Substance: LACOSAMIDE
     Indication: SEIZURE
     Dosage: 1 ML, 2X/DAY (BID)

REACTIONS (1)
  - No adverse event [Unknown]
